FAERS Safety Report 18510381 (Version 1)
Quarter: 2020Q4

REPORT INFORMATION
  Report Type: Report from Study
  Country: None (occurrence: DE)
  Receive Date: 20201117
  Receipt Date: 20201117
  Transmission Date: 20210114
  Serious: Yes (Hospitalization, Other)
  Sender: FDA-Public Use
  Company Number: DE-ABBVIE-20K-062-3649311-00

PATIENT
  Age: 56 Year
  Sex: Male

DRUGS (1)
  1. HUMIRA [Suspect]
     Active Substance: ADALIMUMAB
     Indication: PSORIASIS
     Route: 058
     Dates: start: 2018, end: 2019

REACTIONS (5)
  - Throat cancer [Unknown]
  - Headache [Unknown]
  - Road traffic accident [Unknown]
  - Psoriasis [Unknown]
  - Limb injury [Unknown]

NARRATIVE: CASE EVENT DATE: 20190705
